FAERS Safety Report 8347323-1 (Version None)
Quarter: 2012Q2

REPORT INFORMATION
  Report Type: 
  Country: None (occurrence: None)
  Receive Date: 20120509
  Receipt Date: 20120502
  Transmission Date: 20120825
  Serious: Yes (Hospitalization)
  Sender: FDA-Public Use
  Company Number: JP-ROCHE-1063674

PATIENT
  Sex: Male
  Weight: 59.4 kg

DRUGS (13)
  1. AVASTIN [Suspect]
     Indication: NON-SMALL CELL LUNG CANCER
     Route: 041
     Dates: start: 20110404
  2. AMLODIPINE BESYLATE [Suspect]
     Indication: HYPERTENSION
     Route: 048
  3. TELMISARTAN [Suspect]
     Indication: HYPERTENSION
     Route: 048
  4. KERATINAMIN [Concomitant]
     Indication: DRY SKIN
     Dosage: PROPER PROPER QUANTITY
     Route: 062
     Dates: start: 20110606
  5. RINDERON-VG [Concomitant]
     Indication: DERMATITIS ACNEIFORM
     Dosage: PROPER PROPER QUANTITY
     Route: 062
     Dates: start: 20110516
  6. INDAPAMIDE [Suspect]
     Indication: HYPERTENSION
     Route: 048
     Dates: start: 20111216
  7. CIRCANETTEN [Concomitant]
     Indication: HAEMORRHOIDS
     Route: 048
     Dates: start: 20110615
  8. LOCOID [Concomitant]
     Indication: DERMATITIS ACNEIFORM
     Dosage: PROPER PROPER QUANTITY
     Route: 062
     Dates: start: 20111226
  9. TARCEVA [Suspect]
     Indication: NON-SMALL CELL LUNG CANCER
     Route: 048
     Dates: start: 20110404
  10. BORRAZA-G [Concomitant]
     Indication: HAEMORRHOIDS
     Dosage: PROPER QUANTITY
     Route: 054
     Dates: start: 20110615
  11. BECLOMETHASONE DIPROPIONATE [Concomitant]
     Indication: DERMATITIS ACNEIFORM
     Dosage: PROPER PROPER QUANTITY
     Route: 062
     Dates: start: 20110408
  12. LANSOPRAZOLE [Concomitant]
     Indication: GASTROOESOPHAGEAL REFLUX DISEASE
     Route: 048
     Dates: start: 20110418
  13. MAGMITT [Concomitant]
     Indication: CONSTIPATION
     Route: 048
     Dates: start: 20110413

REACTIONS (1)
  - VERTIGO POSITIONAL [None]
